FAERS Safety Report 13630874 (Version 2)
Quarter: 2017Q2

REPORT INFORMATION
  Report Type: Other
  Country: FR (occurrence: FR)
  Receive Date: 20170608
  Receipt Date: 20170614
  Transmission Date: 20170830
  Serious: Yes (Other)
  Sender: FDA-Public Use
  Company Number: FR-ASTELLAS-2017US022266

PATIENT
  Age: 54 Year
  Sex: Female

DRUGS (20)
  1. CEFEPIME [Suspect]
     Active Substance: CEFEPIME HYDROCHLORIDE
     Indication: URINARY TRACT INFECTION PSEUDOMONAL
     Route: 042
     Dates: start: 20170410, end: 20170414
  2. SIRDALUD [Suspect]
     Active Substance: TIZANIDINE
     Route: 048
     Dates: start: 20170208
  3. SIRDALUD [Suspect]
     Active Substance: TIZANIDINE
     Route: 048
     Dates: start: 20170415
  4. VESICARE [Suspect]
     Active Substance: SOLIFENACIN SUCCINATE
     Indication: URINARY INCONTINENCE
     Route: 048
     Dates: start: 20161222, end: 20170414
  5. SIRDALUD [Suspect]
     Active Substance: TIZANIDINE
     Route: 048
     Dates: start: 20170309
  6. BACLOFEN. [Concomitant]
     Active Substance: BACLOFEN
     Indication: MUSCLE SPASTICITY
     Route: 048
     Dates: start: 201611
  7. SIRDALUD [Suspect]
     Active Substance: TIZANIDINE
     Route: 048
     Dates: start: 20170414
  8. AMOXICILLINE                       /00249602/ [Concomitant]
     Active Substance: AMOXICILLIN
     Indication: DEVICE RELATED SEPSIS
     Route: 048
     Dates: start: 201608
  9. SIRDALUD [Suspect]
     Active Substance: TIZANIDINE
     Indication: MUSCLE SPASTICITY
     Route: 048
     Dates: start: 20161217
  10. SIRDALUD [Suspect]
     Active Substance: TIZANIDINE
     Route: 048
     Dates: start: 20170422
  11. SIRDALUD [Suspect]
     Active Substance: TIZANIDINE
     Route: 048
     Dates: start: 20170425
  12. SIRDALUD [Suspect]
     Active Substance: TIZANIDINE
     Route: 048
     Dates: start: 20170517
  13. LEVOFLOXACIN. [Concomitant]
     Active Substance: LEVOFLOXACIN
     Indication: DEVICE RELATED SEPSIS
     Route: 048
     Dates: start: 201604
  14. SIRDALUD [Suspect]
     Active Substance: TIZANIDINE
     Route: 048
     Dates: start: 20170317
  15. SIRDALUD [Suspect]
     Active Substance: TIZANIDINE
     Route: 048
     Dates: start: 20170328
  16. SIRDALUD [Suspect]
     Active Substance: TIZANIDINE
     Route: 048
     Dates: start: 20170419
  17. SIRDALUD [Suspect]
     Active Substance: TIZANIDINE
     Route: 048
     Dates: start: 20170516
  18. SIRDALUD [Suspect]
     Active Substance: TIZANIDINE
     Route: 048
     Dates: start: 20170210
  19. SIRDALUD [Suspect]
     Active Substance: TIZANIDINE
     Route: 048
     Dates: start: 20170224
  20. SIRDALUD [Suspect]
     Active Substance: TIZANIDINE
     Route: 048
     Dates: start: 20170314

REACTIONS (2)
  - Mixed liver injury [Recovered/Resolved]
  - Pseudomonas infection [Unknown]

NARRATIVE: CASE EVENT DATE: 20170407
